FAERS Safety Report 6631149-0 (Version None)
Quarter: 2010Q1

REPORT INFORMATION
  Report Type: 
  Country: None (occurrence: None)
  Receive Date: 20100309
  Receipt Date: 20100222
  Transmission Date: 20100710
  Serious: Yes (Hospitalization)
  Sender: FDA-Public Use
  Company Number: 231853J10USA

PATIENT
  Age: 50 Year
  Sex: Female

DRUGS (4)
  1. REBIF [Suspect]
     Indication: MULTIPLE SCLEROSIS
     Dosage: 44 MCG, 3 IN 1 WEEKS, SUBCUTANEOUS
     Route: 058
     Dates: start: 20081212
  2. TRAMADOL HCL [Suspect]
     Indication: PAIN
  3. CALTRATE D (LEKOVIT CA) [Concomitant]
  4. ALEVE [Concomitant]

REACTIONS (8)
  - DEHYDRATION [None]
  - FALL [None]
  - HYPERHIDROSIS [None]
  - MULTIPLE SCLEROSIS [None]
  - MUSCULAR WEAKNESS [None]
  - NAUSEA [None]
  - PAIN [None]
  - VOMITING [None]
